FAERS Safety Report 19950486 (Version 1)
Quarter: 2021Q4

REPORT INFORMATION
  Report Type: Spontaneous
  Country: US (occurrence: US)
  Receive Date: 20211013
  Receipt Date: 20211013
  Transmission Date: 20220303
  Serious: Yes (Hospitalization)
  Sender: FDA-Public Use
  Company Number: US-CASPER PHARMA LLC-2021CAS000112

PATIENT
  Sex: Female

DRUGS (1)
  1. ANTIVERT [Suspect]
     Active Substance: MECLIZINE HYDROCHLORIDE
     Indication: Dizziness
     Dosage: UNK
     Route: 065
     Dates: start: 1963

REACTIONS (2)
  - Anaphylactic reaction [Unknown]
  - Product use in unapproved indication [None]
